FAERS Safety Report 17285999 (Version 1)
Quarter: 2020Q1

REPORT INFORMATION
  Report Type: Spontaneous
  Country: US (occurrence: US)
  Receive Date: 20200118
  Receipt Date: 20200118
  Transmission Date: 20200409
  Serious: Yes (Hospitalization, Other)
  Sender: FDA-Public Use
  Company Number: US-AUROBINDO-AUR-APL-2020-002775

PATIENT
  Age: 19 Year
  Sex: Male

DRUGS (1)
  1. CLOPIDOGREL [Suspect]
     Active Substance: CLOPIDOGREL BISULFATE
     Indication: PRODUCT USED FOR UNKNOWN INDICATION
     Dosage: 75 MILLIGRAM, DAILY
     Route: 065

REACTIONS (7)
  - Hypoxia [Unknown]
  - Somnolence [Unknown]
  - Dizziness [Unknown]
  - Pulmonary oedema [Unknown]
  - Acute respiratory distress syndrome [Unknown]
  - Hypotension [Unknown]
  - Dyspnoea [Unknown]
